FAERS Safety Report 11043238 (Version 1)
Quarter: 2015Q2

REPORT INFORMATION
  Report Type: Spontaneous
  Country: US (occurrence: None)
  Receive Date: 20150416
  Receipt Date: 20150416
  Transmission Date: 20150821
  Serious: Yes (Disabling)
  Sender: FDA-Public Use
  Company Number: None

PATIENT
  Age: 30 Year
  Sex: Female
  Weight: 83.92 kg

DRUGS (10)
  1. BIOTIN [Concomitant]
     Active Substance: BIOTIN
  2. SPRINTEC [Concomitant]
     Active Substance: ETHINYL ESTRADIOL\NORGESTIMATE
  3. FLEXERIL [Concomitant]
     Active Substance: CYCLOBENZAPRINE HYDROCHLORIDE
  4. VITAMIN D [Concomitant]
     Active Substance: CHOLECALCIFEROL
  5. PEPCID [Concomitant]
     Active Substance: FAMOTIDINE
  6. GABAPENTIN. [Concomitant]
     Active Substance: GABAPENTIN
  7. TOPAMAX [Suspect]
     Active Substance: TOPIRAMATE
     Indication: INSOMNIA
     Route: 048
  8. LOVASTATIN. [Concomitant]
     Active Substance: LOVASTATIN
  9. MULTI VITAMIN [Concomitant]
     Active Substance: VITAMINS
  10. PROZAC [Concomitant]
     Active Substance: FLUOXETINE HYDROCHLORIDE

REACTIONS (1)
  - Macular degeneration [None]

NARRATIVE: CASE EVENT DATE: 20141020
